FAERS Safety Report 14518701 (Version 6)
Quarter: 2018Q4

REPORT INFORMATION
  Report Type: Report from Study
  Country: US (occurrence: US)
  Receive Date: 20180212
  Receipt Date: 20181109
  Transmission Date: 20190204
  Serious: Yes (Death, Hospitalization)
  Sender: FDA-Public Use
  Company Number: US-TESARO, INC-US-2018TSO00654

PATIENT
  Age: 85 Year
  Sex: Female
  Weight: 88.89 kg

DRUGS (2)
  1. ZEJULA [Suspect]
     Active Substance: NIRAPARIB
     Indication: MALIGNANT PERITONEAL NEOPLASM
     Dosage: 100 MG, QD
     Route: 048
     Dates: start: 201711, end: 20180215
  2. ZEJULA [Suspect]
     Active Substance: NIRAPARIB
     Indication: OVARIAN CANCER

REACTIONS (16)
  - Adverse event [Unknown]
  - Drug ineffective [Not Recovered/Not Resolved]
  - Fatigue [Not Recovered/Not Resolved]
  - Nausea [Not Recovered/Not Resolved]
  - Malignant neoplasm progression [Fatal]
  - Infected skin ulcer [Not Recovered/Not Resolved]
  - Inflammation [Recovered/Resolved]
  - Injection site bruising [Unknown]
  - Therapy non-responder [Unknown]
  - Pulmonary congestion [Recovered/Resolved]
  - Gait disturbance [Not Recovered/Not Resolved]
  - Tumour marker increased [Unknown]
  - Intentional underdose [Recovered/Resolved]
  - White blood cell count decreased [Not Recovered/Not Resolved]
  - Asthenia [Not Recovered/Not Resolved]
  - Therapy cessation [Not Recovered/Not Resolved]

NARRATIVE: CASE EVENT DATE: 201712
